FAERS Safety Report 5814782-5 (Version None)
Quarter: 2008Q3

REPORT INFORMATION
  Report Type: 
  Country: None (occurrence: None)
  Receive Date: 20080718
  Receipt Date: 20080709
  Transmission Date: 20090109
  Serious: Yes (Life-Threatening, Hospitalization)
  Sender: FDA-Public Use
  Company Number: US-ABBOTT-08P-163-0441772-00

PATIENT
  Sex: Female
  Weight: 136 kg

DRUGS (1)
  1. HUMIRA [Suspect]
     Indication: RHEUMATOID ARTHRITIS
     Route: 058
     Dates: start: 20030806, end: 20080303

REACTIONS (2)
  - KIDNEY INFECTION [None]
  - RENAL HAEMORRHAGE [None]
